FAERS Safety Report 7918280-4 (Version None)
Quarter: 2011Q4

REPORT INFORMATION
  Report Type: 
  Country: None (occurrence: None)
  Receive Date: 20111116
  Receipt Date: 20111109
  Transmission Date: 20120403
  Serious: Yes (Hospitalization)
  Sender: FDA-Public Use
  Company Number: JP-GLAXOSMITHKLINE-B0761922A

PATIENT
  Age: 38 Year
  Sex: Female

DRUGS (2)
  1. LAMICTAL [Suspect]
     Indication: BIPOLAR DISORDER
     Route: 048
  2. VALPROATE SODIUM [Concomitant]
     Route: 048

REACTIONS (2)
  - SKIN DISORDER [None]
  - DERMATITIS [None]
